FAERS Safety Report 5206273-X (Version None)
Quarter: 2006Q4

REPORT INFORMATION
  Report Type: 
  Country: None (occurrence: None)
  Receive Date: 20061026
  Receipt Date: 20060911
  Transmission Date: 20070319
  Serious: Yes (Other)
  Sender: FDA-Public Use
  Company Number: 2006111072

PATIENT
  Sex: Male

DRUGS (1)
  1. LYRICA [Suspect]
     Dosage: 150 MG (50 MG, 3 IN 1 D)

REACTIONS (2)
  - DISORIENTATION [None]
  - LOSS OF CONSCIOUSNESS [None]
